FAERS Safety Report 14611605 (Version 2)
Quarter: 2018Q1

REPORT INFORMATION
  Report Type: Spontaneous
  Country: AT (occurrence: AT)
  Receive Date: 20180308
  Receipt Date: 20180327
  Transmission Date: 20180509
  Serious: Yes (Other)
  Sender: FDA-Public Use
  Company Number: AT-BAXTER-2018BAX007472

PATIENT
  Age: 46 Year
  Sex: Female
  Weight: 63 kg

DRUGS (10)
  1. DEXAMETHASONE. [Concomitant]
     Active Substance: DEXAMETHASONE
     Route: 020
     Dates: start: 20170814
  2. 5HT3-ANTAGONIST [Concomitant]
     Indication: ANTIEMETIC SUPPORTIVE CARE
     Route: 065
  3. ONDANSETRON [Concomitant]
     Active Substance: ONDANSETRON
     Route: 042
     Dates: start: 20170814
  4. DEXAMETHASONE. [Concomitant]
     Active Substance: DEXAMETHASONE
     Indication: ANTIEMETIC SUPPORTIVE CARE
     Route: 042
     Dates: start: 20170814
  5. APREPITANT. [Concomitant]
     Active Substance: APREPITANT
     Indication: ANTIEMETIC SUPPORTIVE CARE
     Dosage: 128/80MG
     Route: 048
     Dates: start: 20170814
  6. LONQUEX [Suspect]
     Active Substance: LIPEGFILGRASTIM
     Dosage: CYCLE 3
     Route: 065
     Dates: start: 20170928
  7. ONDANSETRON [Concomitant]
     Active Substance: ONDANSETRON
     Indication: ANTIEMETIC SUPPORTIVE CARE
     Route: 048
     Dates: start: 20170814
  8. ENDOXAN ^BAXTER^ 1G TROCKENSTECHAMPULLE [Suspect]
     Active Substance: CYCLOPHOSPHAMIDE
     Indication: NEOADJUVANT THERAPY
     Route: 042
     Dates: start: 20170814, end: 20171023
  9. LONQUEX [Suspect]
     Active Substance: LIPEGFILGRASTIM
     Indication: DRUG THERAPY
     Dosage: CYCLE 2
     Route: 058
     Dates: start: 20170906
  10. EPIRUBICIN [Suspect]
     Active Substance: EPIRUBICIN
     Indication: NEOADJUVANT THERAPY
     Route: 042
     Dates: start: 20170814, end: 20171023

REACTIONS (2)
  - Febrile neutropenia [Unknown]
  - Drug ineffective [Unknown]
